FAERS Safety Report 19934080 (Version 1)
Quarter: 2021Q4

REPORT INFORMATION
  Report Type: Spontaneous
  Country: PL (occurrence: PL)
  Receive Date: 20211008
  Receipt Date: 20211008
  Transmission Date: 20220303
  Serious: Yes (Other)
  Sender: FDA-Public Use
  Company Number: PL-ZENTIVA-2021-ZT-006891

PATIENT
  Age: 70 Year
  Sex: Male

DRUGS (2)
  1. IMATINIB. [Suspect]
     Active Substance: IMATINIB MESYLATE
     Indication: Metastases to liver
     Dosage: 800 MILLIGRAM, QD
     Route: 065
  2. IMATINIB. [Suspect]
     Active Substance: IMATINIB MESYLATE
     Dosage: 400 MILLIGRAM, QD
     Route: 065
     Dates: start: 201801

REACTIONS (2)
  - Fluid retention [Unknown]
  - Skin toxicity [Unknown]
